FAERS Safety Report 16021834 (Version 2)
Quarter: 2019Q1

REPORT INFORMATION
  Report Type: Spontaneous
  Country: CA (occurrence: CA)
  Receive Date: 20190301
  Receipt Date: 20190308
  Transmission Date: 20190418
  Serious: Yes (Hospitalization)
  Sender: FDA-Public Use
  Company Number: CA-ROCHE-2261448

PATIENT
  Sex: Male

DRUGS (1)
  1. OCREVUS [Suspect]
     Active Substance: OCRELIZUMAB
     Indication: PRODUCT USED FOR UNKNOWN INDICATION
     Dosage: 4/FEB/2019 RECEIVED SAME SUBSEQUENT DOSE OF OCRELIZUMAB; 21/FEB/2019, HE RECEIVED SECOND OCRELIZUMAB
     Route: 065

REACTIONS (2)
  - Infusion related reaction [Recovered/Resolved]
  - Relapsing multiple sclerosis [Unknown]
